FAERS Safety Report 10025826 (Version 1)
Quarter: 2014Q1

REPORT INFORMATION
  Report Type: Spontaneous
  Country: DE (occurrence: None)
  Receive Date: 20140314
  Receipt Date: 20140314
  Transmission Date: 20141002
  Serious: Yes (Life-Threatening, Hospitalization)
  Sender: FDA-Public Use
  Company Number: AUR-APL-2014-02634

PATIENT
  Age: 65 Year
  Sex: Male
  Weight: 100 kg

DRUGS (3)
  1. SIMVASTATIN [Suspect]
     Indication: HYPERLIPIDAEMIA
     Route: 048
     Dates: start: 2013
  2. ASS (ACETYLSALICYTIC ACID) [Concomitant]
  3. LOSARTAN (LOSARTAN) [Concomitant]

REACTIONS (2)
  - Immune-mediated necrotising myopathy [None]
  - Crush syndrome [None]
